FAERS Safety Report 7989253-0 (Version None)
Quarter: 2011Q4

REPORT INFORMATION
  Report Type: 
  Country: None (occurrence: None)
  Receive Date: 20111216
  Receipt Date: 20111216
  Transmission Date: 20120403
  Serious: Yes (Other)
  Sender: FDA-Public Use
  Company Number: None

PATIENT
  Age: 47 Year
  Sex: Female

DRUGS (11)
  1. XOPENEX [Concomitant]
  2. CALCIUM [Concomitant]
  3. COQ10 [Concomitant]
  4. ALVESCO [Suspect]
     Indication: ASTHMA
     Dosage: 80 MCG 2 PUFFS 2X DAILY INHALED
     Route: 055
     Dates: start: 20111213, end: 20111214
  5. ALLEGRA [Concomitant]
  6. CRANBERRY [Concomitant]
  7. RABEPRAZOLE SODIUM [Concomitant]
  8. PREDNISONE TAB [Concomitant]
  9. FISH OIL [Concomitant]
  10. CETIRIZINE [Concomitant]
  11. VITAMIN C [Concomitant]

REACTIONS (1)
  - BRONCHOSPASM [None]
